FAERS Safety Report 9734847 (Version 1)
Quarter: 2013Q4

REPORT INFORMATION
  Report Type: Spontaneous
  Country: GB (occurrence: GB)
  Receive Date: 20131206
  Receipt Date: 20131206
  Transmission Date: 20140711
  Serious: Yes (Other)
  Sender: FDA-Public Use
  Company Number: GB-JNJFOC-20131202554

PATIENT
  Age: 43 Year
  Sex: Male

DRUGS (3)
  1. ITRACONAZOLE [Suspect]
     Indication: RHINOVIRUS INFECTION
     Route: 048
  2. FLUTICASONE [Suspect]
     Indication: RHINOVIRUS INFECTION
     Route: 055
  3. FLUTICASONE [Suspect]
     Indication: RHINOVIRUS INFECTION
     Route: 055

REACTIONS (2)
  - Adrenal insufficiency [Unknown]
  - Off label use [Unknown]
